FAERS Safety Report 7040441-X (Version None)
Quarter: 2010Q4

REPORT INFORMATION
  Report Type: 
  Country: None (occurrence: None)
  Receive Date: 20101008
  Receipt Date: 20101008
  Transmission Date: 20110411
  Serious: Yes (Disabling)
  Sender: FDA-Public Use
  Company Number: None

PATIENT
  Sex: Female
  Weight: 56.6996 kg

DRUGS (2)
  1. NEOMYCIN AND POLYMYXIN B SULFATES AND HYDROCORTISONE OTIC SUSPENSION 1 [Suspect]
     Indication: EAR DISORDER
     Dosage: 2 - 5 DROPS TWICE A DAY IN (R) EAR
     Dates: start: 20100807, end: 20100819
  2. NEOMYCIN AND POLYMYXIN B SULFATES AND HYDROCORTISONE OTIC SUSPENSION 1 [Suspect]
     Indication: INFLAMMATION
     Dosage: 2 - 5 DROPS TWICE A DAY IN (R) EAR
     Dates: start: 20100807, end: 20100819

REACTIONS (2)
  - HEARING IMPAIRED [None]
  - TINNITUS [None]
